FAERS Safety Report 21138064 (Version 6)
Quarter: 2022Q4

REPORT INFORMATION
  Report Type: Spontaneous
  Country: JP (occurrence: JP)
  Receive Date: 20220727
  Receipt Date: 20221202
  Transmission Date: 20230113
  Serious: Yes (Hospitalization, Other)
  Sender: FDA-Public Use
  Company Number: JP-GLAXOSMITHKLINE-JP2022JPN110163

PATIENT

DRUGS (2)
  1. NUCALA [Suspect]
     Active Substance: MEPOLIZUMAB
     Indication: Asthma
     Dosage: 100 MG ONCE EVERY 4 WEEKS
     Route: 058
     Dates: start: 20170224
  2. SYMBICORT INHALATION [Concomitant]
     Indication: Asthma
     Dosage: 4-6 PUFFS
     Route: 055

REACTIONS (4)
  - Lymphoma [Not Recovered/Not Resolved]
  - Lymphadenopathy [Recovering/Resolving]
  - Pleural effusion [Recovered/Resolved]
  - Dyspnoea [Recovered/Resolved]

NARRATIVE: CASE EVENT DATE: 20220701
